FAERS Safety Report 25449086 (Version 1)
Quarter: 2025Q2

REPORT INFORMATION
  Report Type: Spontaneous
  Country: DE (occurrence: DE)
  Receive Date: 20250618
  Receipt Date: 20250618
  Transmission Date: 20250716
  Serious: Yes (Disabling)
  Sender: CELLTRION
  Company Number: DE-CELLTRION INC.-2025DE018834

PATIENT

DRUGS (2)
  1. ADALIMUMAB [Suspect]
     Active Substance: ADALIMUMAB
     Indication: Chronic recurrent multifocal osteomyelitis
     Dosage: 40 MG, EVERY 2 WEEKS
     Route: 058
     Dates: end: 202205
  2. ADALIMUMAB [Suspect]
     Active Substance: ADALIMUMAB
     Indication: Acne conglobata

REACTIONS (2)
  - Paradoxical psoriasis [Recovered/Resolved]
  - Drug effective for unapproved indication [Unknown]

NARRATIVE: CASE EVENT DATE: 20210901
